FAERS Safety Report 5518952-5 (Version None)
Quarter: 2007Q4

REPORT INFORMATION
  Report Type: 
  Country: None (occurrence: None)
  Receive Date: 20071114
  Receipt Date: 20071114
  Transmission Date: 20080405
  Serious: Yes (Other)
  Sender: FDA-Public Use
  Company Number: None

PATIENT
  Age: 46 Year
  Sex: Male
  Weight: 73 kg

DRUGS (4)
  1. LORAZEPAM [Suspect]
     Indication: ANXIETY
     Dosage: 5MG  SINGLE-ONLY-DOSE  PO
     Route: 048
     Dates: start: 19880101, end: 20071111
  2. LORAZEPAM [Suspect]
     Indication: INSOMNIA
     Dosage: 5MG  SINGLE-ONLY-DOSE  PO
     Route: 048
     Dates: start: 19880101, end: 20071111
  3. LORAZEPAM [Suspect]
     Indication: ANXIETY
     Dosage: 10MG  SINGLE-ONLY-DOSE  PO
     Route: 048
     Dates: start: 19980101, end: 20071111
  4. LORAZEPAM [Suspect]
     Indication: INSOMNIA
     Dosage: 10MG  SINGLE-ONLY-DOSE  PO
     Route: 048
     Dates: start: 19980101, end: 20071111

REACTIONS (1)
  - NO ADVERSE EVENT [None]
